FAERS Safety Report 4519490-9 (Version None)
Quarter: 2004Q4

REPORT INFORMATION
  Report Type: 
  Country: None (occurrence: None)
  Receive Date: 20041101
  Receipt Date: 20040610
  Transmission Date: 20050328
  Serious: Yes (Other)
  Sender: FDA-Public Use
  Company Number: HQWYE502417JUN04

PATIENT
  Age: 41 Year
  Sex: Female
  Weight: 51.3 kg

DRUGS (5)
  1. PREMARIN [Suspect]
     Indication: OESTROGEN REPLACEMENT THERAPY
     Dosage: 1.25 MG DAILY TO 0.9 MG TO 0.625 MG DAILY
     Dates: start: 20021201, end: 20040201
  2. NEURONTIN [Concomitant]
  3. BEXTRA [Concomitant]
  4. ZANAFLEX [Concomitant]
  5. SYNTHROID [Concomitant]

REACTIONS (2)
  - COUGH [None]
  - SENSATION OF BLOCK IN EAR [None]
